FAERS Safety Report 6845685-5 (Version None)
Quarter: 2010Q3

REPORT INFORMATION
  Report Type: 
  Country: None (occurrence: None)
  Receive Date: 20100715
  Receipt Date: 20070824
  Transmission Date: 20110219
  Serious: No
  Sender: FDA-Public Use
  Company Number: US-PFIZER INC-2007071354

PATIENT
  Sex: Female
  Weight: 79.1 kg

DRUGS (9)
  1. CHANTIX [Suspect]
     Indication: SMOKING CESSATION THERAPY
     Dates: start: 20070801
  2. FOSAMAX [Concomitant]
  3. PLAVIX [Concomitant]
  4. DILTIAZEM [Concomitant]
  5. TRAMADOL HCL [Concomitant]
  6. LISINOPRIL [Concomitant]
  7. SIMVASTATIN [Concomitant]
  8. CALCIUM [Concomitant]
  9. ACETYLSALICYLIC ACID [Concomitant]

REACTIONS (7)
  - ABNORMAL DREAMS [None]
  - ABNORMAL FAECES [None]
  - DELAYED SLEEP PHASE [None]
  - DYSGEUSIA [None]
  - FEAR OF CROWDED PLACES [None]
  - FLATULENCE [None]
  - URINE ODOUR ABNORMAL [None]
